FAERS Safety Report 13721194 (Version 1)
Quarter: 2017Q3

REPORT INFORMATION
  Report Type: Spontaneous
  Country: US (occurrence: US)
  Receive Date: 20170705
  Receipt Date: 20170705
  Transmission Date: 20171127
  Serious: No
  Sender: FDA-Public Use
  Company Number: None

PATIENT
  Age: 65 Year
  Sex: Male
  Weight: 89.55 kg

DRUGS (2)
  1. MULTI VITAMIN [Concomitant]
     Active Substance: VITAMINS
  2. CREST PRO-HEALTH RINSE [Suspect]
     Active Substance: CETYLPYRIDINIUM CHLORIDE
     Indication: DENTAL DISORDER PROPHYLAXIS
     Route: 048
     Dates: start: 20170607, end: 20170629

REACTIONS (4)
  - Tooth discolouration [None]
  - Ageusia [None]
  - Tongue discomfort [None]
  - Dysgeusia [None]

NARRATIVE: CASE EVENT DATE: 20170607
